FAERS Safety Report 26108998 (Version 1)
Quarter: 2025Q4

REPORT INFORMATION
  Report Type: Spontaneous
  Country: AU (occurrence: AU)
  Receive Date: 20251201
  Receipt Date: 20251201
  Transmission Date: 20260117
  Serious: Yes (Other)
  Sender: AMGEN
  Company Number: AU-AMGEN-AUSSP2025235021

PATIENT
  Age: 58 Year
  Sex: Male

DRUGS (2)
  1. PROLIA [Suspect]
     Active Substance: DENOSUMAB
     Indication: Osteoporosis
     Dosage: UNK, Q6MO
     Route: 065
  2. PROLIA [Suspect]
     Active Substance: DENOSUMAB
     Dosage: UNK, Q3MO
     Route: 065

REACTIONS (7)
  - Traumatic fracture [Unknown]
  - Femur fracture [Unknown]
  - Fall [Unknown]
  - Bone density decreased [Unknown]
  - Humerus fracture [Unknown]
  - Drug ineffective [Unknown]
  - Off label use [Unknown]
